FAERS Safety Report 4599558-1 (Version None)
Quarter: 2005Q1

REPORT INFORMATION
  Report Type: 
  Country: None (occurrence: None)
  Receive Date: 20050307
  Receipt Date: 20050301
  Transmission Date: 20050727
  Serious: Yes (Hospitalization)
  Sender: FDA-Public Use
  Company Number: 200511832GDDC

PATIENT
  Age: 12 Year
  Sex: Female

DRUGS (1)
  1. DESMOSPRAY [Suspect]
     Indication: ENURESIS
     Route: 045

REACTIONS (2)
  - HEADACHE [None]
  - INTRACRANIAL PRESSURE INCREASED [None]
